FAERS Safety Report 4424497-6 (Version None)
Quarter: 2004Q3

REPORT INFORMATION
  Report Type: 
  Country: None (occurrence: None)
  Receive Date: 20040812
  Receipt Date: 20031209
  Transmission Date: 20050211
  Serious: Yes (Death, Life-Threatening, Hospitalization)
  Sender: FDA-Public Use
  Company Number: DE-GLAXOSMITHKLINE-D0042697A

PATIENT
  Age: 30 Year
  Sex: Female
  Weight: 44 kg

DRUGS (10)
  1. WELLVONE [Suspect]
     Route: 048
     Dates: start: 20030212, end: 20030101
  2. TENOFOVIR [Suspect]
     Indication: HIV INFECTION
     Dosage: 345MG PER DAY
     Route: 048
     Dates: start: 20030901, end: 20031101
  3. COTRIM D.S. [Suspect]
     Dosage: 1TAB IN THE MORNING
     Route: 048
     Dates: start: 20030901
  4. AMBISOME [Suspect]
     Indication: VISCERAL LEISHMANIASIS
     Route: 042
     Dates: start: 20031001
  5. ZERIT [Concomitant]
     Indication: HIV INFECTION
     Dosage: 40MG TWICE PER DAY
     Route: 048
     Dates: start: 20030310, end: 20031201
  6. KALETRA [Concomitant]
     Dosage: 3TAB TWICE PER DAY
     Route: 048
     Dates: start: 20030310
  7. EPIVIR [Concomitant]
     Dosage: 150MG TWICE PER DAY
     Route: 048
     Dates: start: 20030310
  8. ZOLOFT [Concomitant]
     Dosage: 50MG IN THE MORNING
     Route: 048
     Dates: start: 20030317
  9. BELOC ZOK MITE [Concomitant]
     Dosage: 1TAB TWICE PER DAY
     Route: 048
     Dates: start: 20020101
  10. VIREAD [Concomitant]
     Dosage: 1TAB IN THE MORNING
     Route: 048
     Dates: start: 20031215

REACTIONS (11)
  - BLOOD SODIUM DECREASED [None]
  - C-REACTIVE PROTEIN INCREASED [None]
  - HEPATIC STEATOSIS [None]
  - HEPATITIS TOXIC [None]
  - HYPERLACTACIDAEMIA [None]
  - HYPERTHYROIDISM [None]
  - HYPOKALAEMIA [None]
  - LEUKOENCEPHALOPATHY [None]
  - MULTI-ORGAN FAILURE [None]
  - TRANSAMINASES INCREASED [None]
  - URINARY TRACT INFECTION [None]
